FAERS Safety Report 8088903-0 (Version None)
Quarter: 2012Q1

REPORT INFORMATION
  Report Type: 
  Country: None (occurrence: None)
  Receive Date: 20120128
  Receipt Date: 20110630
  Transmission Date: 20120608
  Serious: No
  Sender: FDA-Public Use
  Company Number: US-ABBOTT-10P-163-0684119-00

PATIENT
  Sex: Male
  Weight: 68.1 kg

DRUGS (5)
  1. CO Q-10 [Concomitant]
     Indication: PRODUCT USED FOR UNKNOWN INDICATION
  2. HUMIRA [Suspect]
     Indication: ANKYLOSING SPONDYLITIS
     Route: 058
     Dates: start: 20080101, end: 20101105
  3. FISH OIL [Concomitant]
     Indication: PRODUCT USED FOR UNKNOWN INDICATION
  4. OMEPRAZOLE [Concomitant]
     Indication: PRODUCT USED FOR UNKNOWN INDICATION
  5. VICODIN [Concomitant]
     Indication: PAIN

REACTIONS (7)
  - THROAT IRRITATION [None]
  - PROSTATITIS [None]
  - CHEST DISCOMFORT [None]
  - PRURITUS [None]
  - OROPHARYNGEAL PAIN [None]
  - RASH [None]
  - BACK PAIN [None]
